FAERS Safety Report 7270989-4 (Version None)
Quarter: 2011Q1

REPORT INFORMATION
  Report Type: 
  Country: None (occurrence: None)
  Receive Date: 20110202
  Receipt Date: 20110124
  Transmission Date: 20110831
  Serious: Yes (Hospitalization, Other)
  Sender: FDA-Public Use
  Company Number: BR-ELI_LILLY_AND_COMPANY-BR201101006808

PATIENT
  Sex: Female

DRUGS (3)
  1. HUMULIN R [Suspect]
     Dosage: UNK, UNKNOWN
     Route: 065
     Dates: start: 19980101
  2. HUMULIN N [Concomitant]
     Dosage: UNK, UNKNOWN
     Route: 065
  3. HUMULIN R [Suspect]
     Indication: TYPE 1 DIABETES MELLITUS
     Dosage: UNK, UNKNOWN
     Route: 065
     Dates: start: 19950101

REACTIONS (4)
  - DRUG EXPOSURE DURING PREGNANCY [None]
  - BLOOD GLUCOSE DECREASED [None]
  - CONVULSION [None]
  - HOSPITALISATION [None]
